FAERS Safety Report 18806680 (Version 1)
Quarter: 2021Q1

REPORT INFORMATION
  Report Type: Spontaneous
  Country: US (occurrence: US)
  Receive Date: 20210128
  Receipt Date: 20210128
  Transmission Date: 20210419
  Serious: Yes (Other)
  Sender: FDA-Public Use
  Company Number: None

PATIENT
  Age: 38 Year
  Sex: Female
  Weight: 43.65 kg

DRUGS (1)
  1. FLUCONAZOLE. [Suspect]
     Active Substance: FLUCONAZOLE
     Indication: VULVOVAGINAL MYCOTIC INFECTION
     Dosage: ?          QUANTITY:2 TABLET(S);OTHER FREQUENCY:2 AFTER 3 DAYS;?
     Route: 048
     Dates: start: 20200807, end: 20201230

REACTIONS (9)
  - Erythema [None]
  - Pruritus [None]
  - Skin discolouration [None]
  - Swollen tongue [None]
  - Product substitution issue [None]
  - Urticaria [None]
  - Swelling face [None]
  - Peripheral swelling [None]
  - Fixed eruption [None]

NARRATIVE: CASE EVENT DATE: 20200807
